FAERS Safety Report 11434226 (Version 1)
Quarter: 2015Q3

REPORT INFORMATION
  Report Type: Spontaneous
  Country: US (occurrence: US)
  Receive Date: 20150831
  Receipt Date: 20150831
  Transmission Date: 20151125
  Serious: No
  Sender: FDA-Public Use
  Company Number: US-009507513-1508USA011019

PATIENT
  Age: 67 Year
  Sex: Female

DRUGS (2)
  1. DULERA [Suspect]
     Active Substance: FORMOTEROL FUMARATE DIHYDRATE\MOMETASONE FUROATE
     Indication: ASTHMA
     Dosage: 2 PUFF/TWICE PER DAY
     Dates: start: 20150528, end: 2015
  2. DULERA [Suspect]
     Active Substance: FORMOTEROL FUMARATE DIHYDRATE\MOMETASONE FUROATE
     Dosage: 100 MCG
     Dates: start: 2015

REACTIONS (4)
  - Pain [Recovering/Resolving]
  - Oral candidiasis [Recovering/Resolving]
  - Product quality issue [Unknown]
  - Tongue discolouration [Recovering/Resolving]

NARRATIVE: CASE EVENT DATE: 20150720
